FAERS Safety Report 10722421 (Version 1)
Quarter: 2015Q1

REPORT INFORMATION
  Report Type: Spontaneous
  Country: US (occurrence: US)
  Receive Date: 20150119
  Receipt Date: 20150119
  Transmission Date: 20150721
  Serious: Yes (Other)
  Sender: FDA-Public Use
  Company Number: US-GLAXOSMITHKLINE INC.-US2015GSK006416

PATIENT
  Sex: Female

DRUGS (4)
  1. FLONASE [Suspect]
     Active Substance: FLUTICASONE PROPIONATE
     Indication: SINUSITIS
     Route: 045
  2. VERAMYST [Suspect]
     Active Substance: FLUTICASONE FUROATE
     Indication: SINUSITIS
     Dosage: 4 DF, QD
     Route: 045
     Dates: start: 2012
  3. VICKS NYQUIL [Concomitant]
     Active Substance: ACETAMINOPHEN\DEXTROMETHORPHAN HYDROBROMIDE\DOXYLAMINE SUCCINATE
  4. XANAX [Concomitant]
     Active Substance: ALPRAZOLAM

REACTIONS (8)
  - Hypoaesthesia [Unknown]
  - Visual impairment [Not Recovered/Not Resolved]
  - Transient ischaemic attack [Unknown]
  - Paraesthesia [Unknown]
  - Therapy cessation [Unknown]
  - Drug ineffective [Recovered/Resolved]
  - Cataract [Not Recovered/Not Resolved]
  - Vision blurred [Not Recovered/Not Resolved]
